FAERS Safety Report 12676918 (Version 1)
Quarter: 2016Q3

REPORT INFORMATION
  Report Type: Spontaneous
  Country: US (occurrence: US)
  Receive Date: 20160823
  Receipt Date: 20160823
  Transmission Date: 20161109
  Serious: No
  Sender: FDA-Public Use
  Company Number: US-TEVA-588390USA

PATIENT
  Age: 73 Year
  Sex: Male
  Weight: 102.15 kg

DRUGS (1)
  1. CARBIDOPA AND LEVODOPA [Suspect]
     Active Substance: CARBIDOPA\LEVODOPA
     Indication: PARKINSON^S DISEASE
     Dosage: 100/25MG 3 PILLS A DAY
     Route: 065
     Dates: start: 201410

REACTIONS (1)
  - Abdominal discomfort [Unknown]
